FAERS Safety Report 9103713 (Version 4)
Quarter: 2014Q1

REPORT INFORMATION
  Report Type: Spontaneous
  Country: US (occurrence: US)
  Receive Date: 20130219
  Receipt Date: 20140221
  Transmission Date: 20141002
  Serious: Yes (Life-Threatening, Hospitalization)
  Sender: FDA-Public Use
  Company Number: US-BAYER-2013-018487

PATIENT
  Age: 26 Year
  Sex: Female
  Weight: 49.43 kg

DRUGS (7)
  1. MIRENA [Suspect]
     Indication: CONTRACEPTION
     Dosage: 20 MCG/24HR, CONT
     Route: 015
     Dates: start: 201202, end: 20121109
  2. MIRENA [Suspect]
     Indication: MENORRHAGIA
     Dosage: 20 MCG/24HR, CONT
     Route: 015
     Dates: start: 20081212, end: 20090710
  3. ZANTAC [Concomitant]
  4. FERROUS SULFATE [Concomitant]
  5. HYDROCODONE W/ACETAMINOPHEN [Concomitant]
  6. SERTRALINE [Concomitant]
  7. VITAMIN D3 [Concomitant]

REACTIONS (15)
  - Uterine perforation [None]
  - Pain [None]
  - Pregnancy with contraceptive device [None]
  - Drug ineffective [None]
  - Pain [None]
  - General physical health deterioration [None]
  - Anxiety [None]
  - Anhedonia [None]
  - Injury [None]
  - Emotional distress [None]
  - Stress [None]
  - Infection [None]
  - Menorrhagia [None]
  - Depression [None]
  - Device issue [None]
